FAERS Safety Report 15413750 (Version 2)
Quarter: 2018Q3

REPORT INFORMATION
  Report Type: Report from Study
  Country: PA (occurrence: PA)
  Receive Date: 20180921
  Receipt Date: 20180925
  Transmission Date: 20181010
  Serious: Yes (Death, Hospitalization, Other)
  Sender: FDA-Public Use
  Company Number: PHHY2017PA136864

PATIENT
  Age: 84 Year
  Sex: Female

DRUGS (4)
  1. INSULIN [Concomitant]
     Active Substance: INSULIN NOS
     Indication: PRODUCT USED FOR UNKNOWN INDICATION
     Route: 065
  2. SANDOSTATIN LAR DEPOT [Suspect]
     Active Substance: OCTREOTIDE ACETATE
     Dosage: UNK
     Route: 065
     Dates: start: 201708
  3. SANDOSTATIN LAR DEPOT [Suspect]
     Active Substance: OCTREOTIDE ACETATE
     Indication: ACROMEGALY
     Dosage: UNK
     Route: 065
     Dates: start: 20110121, end: 20180720
  4. SANDOSTATIN LAR DEPOT [Suspect]
     Active Substance: OCTREOTIDE ACETATE
     Dosage: 20 MG, UNK
     Route: 065

REACTIONS (13)
  - Fatigue [Unknown]
  - Movement disorder [Unknown]
  - Multiple organ dysfunction syndrome [Fatal]
  - Asthenia [Unknown]
  - Nasopharyngitis [Unknown]
  - Hypoglycaemia [Unknown]
  - Renal failure [Fatal]
  - Hyperglycaemia [Unknown]
  - Limb discomfort [Unknown]
  - Malaise [Unknown]
  - Dizziness [Unknown]
  - Cardio-respiratory arrest [Unknown]
  - Blood growth hormone abnormal [Unknown]

NARRATIVE: CASE EVENT DATE: 20180826
